FAERS Safety Report 25803596 (Version 1)
Quarter: 2025Q3

REPORT INFORMATION
  Report Type: Spontaneous
  Country: JP (occurrence: JP)
  Receive Date: 20250915
  Receipt Date: 20250915
  Transmission Date: 20251021
  Serious: Yes (Other)
  Sender: OTSUKA
  Company Number: JP-MMM-Otsuka-KEL6MGU8

PATIENT
  Age: 34 Year
  Sex: Male

DRUGS (3)
  1. REXULTI [Suspect]
     Active Substance: BREXPIPRAZOLE
     Indication: Depression
     Dosage: 1 MG/DAY
     Route: 048
     Dates: start: 202502, end: 2025
  2. REXULTI [Suspect]
     Active Substance: BREXPIPRAZOLE
     Indication: Depression
     Dosage: 2 MG/DAY
     Route: 048
     Dates: start: 202504, end: 202509
  3. LEXAPRO [Concomitant]
     Active Substance: ESCITALOPRAM OXALATE
     Indication: Depression
     Route: 065

REACTIONS (5)
  - Hypertriglyceridaemia [Recovered/Resolved]
  - Hyperglycaemia [Recovered/Resolved]
  - Glycosylated haemoglobin increased [Unknown]
  - Low density lipoprotein decreased [Unknown]
  - High density lipoprotein decreased [Unknown]
